FAERS Safety Report 5078953-0 (Version None)
Quarter: 2006Q3

REPORT INFORMATION
  Report Type: 
  Country: None (occurrence: None)
  Receive Date: 20060814
  Receipt Date: 20060731
  Transmission Date: 20061208
  Serious: Yes (Death)
  Sender: FDA-Public Use
  Company Number: US-JNJFOC-20051205752

PATIENT
  Sex: Female
  Weight: 71.22 kg

DRUGS (2)
  1. ORTHO EVRA [Suspect]
     Indication: DRUG USE FOR UNKNOWN INDICATION
     Route: 062
     Dates: start: 20030801, end: 20031217
  2. ALBUTEROL [Concomitant]
     Indication: ASTHMA
     Dosage: AS NECESSARY, DOSAGE UNKNOWN
     Route: 055

REACTIONS (16)
  - ABDOMINAL PAIN UPPER [None]
  - BACK PAIN [None]
  - CARDIAC ARREST [None]
  - CONDITION AGGRAVATED [None]
  - GLASGOW COMA SCALE ABNORMAL [None]
  - INTRACARDIAC THROMBUS [None]
  - MUSCULOSKELETAL PAIN [None]
  - PAIN [None]
  - PULMONARY EMBOLISM [None]
  - RESPIRATORY ARREST [None]
  - SINUS BRADYCARDIA [None]
  - SPLENOMEGALY [None]
  - THROMBOCYTOPENIA [None]
  - URINARY TRACT INFECTION [None]
  - VIRAL INFECTION [None]
  - VOMITING [None]
